FAERS Safety Report 7290629-8 (Version None)
Quarter: 2011Q1

REPORT INFORMATION
  Report Type: 
  Country: None (occurrence: None)
  Receive Date: 20110214
  Receipt Date: 20110209
  Transmission Date: 20110831
  Serious: Yes (Death)
  Sender: FDA-Public Use
  Company Number: ES-SANOFI-AVENTIS-2011SA008930

PATIENT
  Sex: Male

DRUGS (2)
  1. XELODA [Suspect]
     Indication: COLON CANCER STAGE III
  2. OXALIPLATIN [Suspect]
     Indication: COLON CANCER STAGE III

REACTIONS (1)
  - TOXICITY TO VARIOUS AGENTS [None]
